FAERS Safety Report 6990507-5 (Version None)
Quarter: 2010Q3

REPORT INFORMATION
  Report Type: 
  Country: None (occurrence: None)
  Receive Date: 20100916
  Receipt Date: 20100623
  Transmission Date: 20110219
  Serious: Yes (Other)
  Sender: FDA-Public Use
  Company Number: GB-PFIZER INC-2010056922

PATIENT
  Age: 46 Year
  Sex: Male
  Weight: 88 kg

DRUGS (4)
  1. LYRICA [Suspect]
     Indication: ANXIETY
     Dosage: 25 MG, 3X/DAY
     Route: 048
     Dates: start: 20100201
  2. VENTOLIN [Concomitant]
     Indication: ASTHMA
     Dosage: 100 UG, 1X/DAY
     Route: 055
  3. BECLOMETHASONE DIPROPIONATE [Concomitant]
     Indication: ASTHMA
     Dosage: UNK
  4. SEREVENT [Concomitant]
     Indication: ASTHMA
     Dosage: 25 UG, 2X/DAY
     Route: 055

REACTIONS (1)
  - LOWER RESPIRATORY TRACT INFECTION [None]
